FAERS Safety Report 23536031 (Version 3)
Quarter: 2024Q2

REPORT INFORMATION
  Report Type: Report from Study
  Country: US (occurrence: US)
  Receive Date: 20240219
  Receipt Date: 20240512
  Transmission Date: 20240716
  Serious: No
  Sender: FDA-Public Use
  Company Number: US-AstraZeneca-CH-00565824A

PATIENT
  Sex: Female

DRUGS (1)
  1. SOLIRIS [Suspect]
     Active Substance: ECULIZUMAB
     Indication: Neuromyelitis optica spectrum disorder
     Dosage: UNK
     Route: 042
     Dates: start: 202304

REACTIONS (18)
  - Rosacea [Unknown]
  - Pollakiuria [Unknown]
  - Drug ineffective [Unknown]
  - Ear congestion [Unknown]
  - Heart rate increased [Unknown]
  - Pain [Unknown]
  - Bone pain [Unknown]
  - Pain in extremity [Unknown]
  - Constipation [Unknown]
  - Chills [Unknown]
  - Cough [Unknown]
  - Dizziness [Unknown]
  - Headache [Unknown]
  - Rash [Unknown]
  - Myalgia [Unknown]
  - Arthralgia [Unknown]
  - Vision blurred [Unknown]
  - Back pain [Unknown]
